FAERS Safety Report 19446491 (Version 3)
Quarter: 2021Q4

REPORT INFORMATION
  Report Type: Report from Study
  Country: CA (occurrence: CA)
  Receive Date: 20210622
  Receipt Date: 20211213
  Transmission Date: 20220304
  Serious: Yes (Other)
  Sender: FDA-Public Use
  Company Number: CA-JNJFOC-20210631740

PATIENT
  Age: 23 Year
  Sex: Female
  Weight: 96 kg

DRUGS (6)
  1. REMICADE [Suspect]
     Active Substance: INFLIXIMAB
     Indication: Colitis ulcerative
     Route: 042
     Dates: end: 20210514
  2. FOLIC ACID [Concomitant]
     Active Substance: FOLIC ACID
     Indication: Colitis ulcerative
     Dosage: AT BEDTIME PRESCRIBED BY GASTROENTEROLOGIST.
     Route: 048
  3. PANTOPRAZOLE MAGNESIUM [Concomitant]
     Active Substance: PANTOPRAZOLE MAGNESIUM
     Indication: Gastrooesophageal reflux disease
     Dosage: AT BEDTIME PRESCRIBED BY GASTROENTEROLOGIST
     Route: 048
  4. EFFEXOR [Concomitant]
     Active Substance: VENLAFAXINE HYDROCHLORIDE
     Indication: Borderline personality disorder
     Dosage: AT BEDTIME PRESCRIBED BY PSYCHIATRIST
     Route: 048
  5. LAMO TRIGINE [Concomitant]
     Indication: Borderline personality disorder
     Dosage: AT BEDTIME PRESCRIBED BY PSYCHIATRIST
     Route: 048
  6. SULFATRIM [Concomitant]
     Active Substance: SULFAMETHOXAZOLE\TRIMETHOPRIM
     Indication: Product used for unknown indication
     Dosage: DS 800 DIN 00445282? 10 TAB 5 DAYS
     Route: 048
     Dates: start: 20210520, end: 20210525

REACTIONS (3)
  - Systemic lupus erythematosus [Not Recovered/Not Resolved]
  - Infection [Unknown]
  - Product dose omission issue [Unknown]
